FAERS Safety Report 23509583 (Version 1)
Quarter: 2024Q1

REPORT INFORMATION
  Report Type: Spontaneous
  Country: US (occurrence: US)
  Receive Date: 20240210
  Receipt Date: 20240210
  Transmission Date: 20240410
  Serious: No
  Sender: FDA-Public Use
  Company Number: US-ABBVIE-5625891

PATIENT

DRUGS (1)
  1. RESTASIS [Suspect]
     Active Substance: CYCLOSPORINE
     Indication: Product used for unknown indication
     Dosage: ON FOR 6 WEEKS NOW, FORM STRENGTH 0.5MG/ML EML
     Route: 047
     Dates: start: 202312

REACTIONS (3)
  - Eye disorder [Unknown]
  - Ocular hyperaemia [Unknown]
  - Eye irritation [Unknown]
